FAERS Safety Report 26208851 (Version 1)
Quarter: 2025Q4

REPORT INFORMATION
  Report Type: Spontaneous
  Country: EU (occurrence: None)
  Receive Date: 20251229
  Receipt Date: 20251229
  Transmission Date: 20260117
  Serious: Yes (Other)
  Sender: ACS DOBFAR
  Company Number: EU-ACS-20250647

PATIENT
  Sex: Female

DRUGS (1)
  1. CEFUROXIME [Suspect]
     Active Substance: CEFUROXIME
     Indication: Antibiotic prophylaxis
     Dosage: ()
     Route: 031

REACTIONS (2)
  - Maculopathy [Recovered/Resolved]
  - Off label use [Unknown]
